FAERS Safety Report 6072925-5 (Version None)
Quarter: 2009Q1

REPORT INFORMATION
  Report Type: 
  Country: None (occurrence: None)
  Receive Date: 20090206
  Receipt Date: 20090109
  Transmission Date: 20090719
  Serious: Yes (Hospitalization)
  Sender: FDA-Public Use
  Company Number: 239091J08USA

PATIENT
  Age: 31 Year
  Sex: Female

DRUGS (2)
  1. REBIF [Suspect]
     Indication: MULTIPLE SCLEROSIS
     Dosage: 44 MCG, 3 IN 1 WEEKS, SUBCUTANEOUS
     Route: 058
     Dates: start: 20071201
  2. ADVIL LIQUI-GELS [Concomitant]

REACTIONS (6)
  - ANAEMIA [None]
  - PAIN [None]
  - PARAESTHESIA [None]
  - UTERINE DISORDER [None]
  - UTERINE INFLAMMATION [None]
  - VAGINAL HAEMORRHAGE [None]
